FAERS Safety Report 24536690 (Version 5)
Quarter: 2025Q1

REPORT INFORMATION
  Report Type: Spontaneous
  Country: US (occurrence: US)
  Receive Date: 20241022
  Receipt Date: 20250204
  Transmission Date: 20250409
  Serious: Yes (Hospitalization)
  Sender: SANOFI AVENTIS
  Company Number: US-SANOFI-02253866

PATIENT
  Age: 52 Year
  Sex: Female

DRUGS (2)
  1. DUPIXENT [Suspect]
     Active Substance: DUPILUMAB
     Indication: Dermatitis atopic
     Dosage: 300 MG, QOW
     Route: 058
     Dates: start: 20240516
  2. CORTICOSTEROID NOS [Concomitant]
     Active Substance: CORTICOSTEROID NOS

REACTIONS (12)
  - Hypersensitivity [Unknown]
  - Infection [Unknown]
  - Sleep disorder due to a general medical condition [Unknown]
  - Hypoaesthesia [Not Recovered/Not Resolved]
  - Impaired quality of life [Not Recovered/Not Resolved]
  - Discomfort [Not Recovered/Not Resolved]
  - Pain in extremity [Unknown]
  - Urticaria [Not Recovered/Not Resolved]
  - Rash [Not Recovered/Not Resolved]
  - Accidental exposure to product [Unknown]
  - Exposure via skin contact [Unknown]
  - Drug ineffective [Unknown]

NARRATIVE: CASE EVENT DATE: 20240101
